FAERS Safety Report 7983089-2 (Version None)
Quarter: 2011Q4

REPORT INFORMATION
  Report Type: 
  Country: None (occurrence: None)
  Receive Date: 20111215
  Receipt Date: 20111202
  Transmission Date: 20120403
  Serious: Yes (Hospitalization)
  Sender: FDA-Public Use
  Company Number: GR-MYLANLABS-2011S1025136

PATIENT
  Age: 26 Year
  Sex: Female

DRUGS (2)
  1. DIAZEPAM [Suspect]
     Indication: MULTIPLE DRUG OVERDOSE
     Route: 065
  2. LEVOMEPROMAZINE [Suspect]
     Indication: MULTIPLE DRUG OVERDOSE
     Route: 065

REACTIONS (5)
  - LOSS OF CONSCIOUSNESS [None]
  - DEEP VEIN THROMBOSIS [None]
  - MULTIPLE DRUG OVERDOSE [None]
  - COMPARTMENT SYNDROME [None]
  - HYPOTENSION [None]
